FAERS Safety Report 9872825 (Version 1)
Quarter: 2014Q1

REPORT INFORMATION
  Report Type: Report from Study
  Country: US (occurrence: US)
  Receive Date: 20140206
  Receipt Date: 20140206
  Transmission Date: 20141002
  Serious: Yes (Hospitalization, Other)
  Sender: FDA-Public Use
  Company Number: US-ROCHE-1344579

PATIENT
  Sex: Female

DRUGS (5)
  1. PEGASYS [Suspect]
     Indication: HEPATITIS C
     Route: 065
     Dates: start: 20130929, end: 20131120
  2. COPEGUS [Suspect]
     Indication: HEPATITIS C
     Route: 065
     Dates: start: 20130929, end: 20131120
  3. SERTRALINE [Concomitant]
     Indication: DEPRESSION
     Route: 065
  4. CARAFATE [Concomitant]
     Indication: DYSPEPSIA
     Route: 065
  5. METHADONE [Concomitant]
     Indication: PAIN
     Route: 065

REACTIONS (4)
  - White blood cell count decreased [Recovering/Resolving]
  - Red blood cell count decreased [Recovered/Resolved]
  - Oedema peripheral [Recovered/Resolved]
  - Alopecia [Recovered/Resolved]
